FAERS Safety Report 10046771 (Version 5)
Quarter: 2014Q3

REPORT INFORMATION
  Report Type: Spontaneous
  Country: US (occurrence: US)
  Receive Date: 20140331
  Receipt Date: 20140903
  Transmission Date: 20150326
  Serious: Yes (Hospitalization, Disabling, Other)
  Sender: FDA-Public Use
  Company Number: PHEH2014US006046

PATIENT
  Age: 52 Year
  Sex: Female
  Weight: 81 kg

DRUGS (12)
  1. GILENYA [Suspect]
     Active Substance: FINGOLIMOD HYDROCHLORIDE
     Indication: RELAPSING-REMITTING MULTIPLE SCLEROSIS
     Dosage: 0.5 MG, QD
     Route: 048
     Dates: start: 20120223, end: 20140320
  2. VITAMIN D [Concomitant]
     Active Substance: CHOLECALCIFEROL
     Indication: VITAMIN D DEFICIENCY
     Dosage: 50000 U, QW
     Route: 048
  3. VICODIN [Concomitant]
     Active Substance: ACETAMINOPHEN\HYDROCODONE BITARTRATE
     Dosage: 1 DF, UNK
  4. LISINOPRIL. [Concomitant]
     Active Substance: LISINOPRIL
     Indication: HYPERTENSION
     Dosage: 10 MG, QD
     Route: 048
  5. SYNTHROID [Concomitant]
     Active Substance: LEVOTHYROXINE SODIUM
     Indication: HYPOTHYROIDISM
     Dosage: 150 UG, QD
     Route: 048
  6. PREDNISONE. [Concomitant]
     Active Substance: PREDNISONE
     Route: 048
  7. ARMODAFINIL. [Concomitant]
     Active Substance: ARMODAFINIL
     Indication: FATIGUE
     Dosage: 150 MG, QD
     Route: 048
  8. NUVIGIL [Concomitant]
     Active Substance: ARMODAFINIL
     Dosage: 150 MG, QD
     Route: 048
  9. NEURONTIN [Concomitant]
     Active Substance: GABAPENTIN
  10. VICODIN [Concomitant]
     Active Substance: ACETAMINOPHEN\HYDROCODONE BITARTRATE
     Indication: PAIN
  11. NEURONTIN [Concomitant]
     Active Substance: GABAPENTIN
     Indication: MULTIPLE SCLEROSIS
  12. COLACE [Concomitant]
     Active Substance: DOCUSATE SODIUM
     Dosage: 200 MG, BID
     Route: 048

REACTIONS (24)
  - Chest pain [Recovering/Resolving]
  - Diffuse large B-cell lymphoma [Recovering/Resolving]
  - Cough [Recovering/Resolving]
  - Pyrexia [Recovering/Resolving]
  - Dyspnoea [Recovering/Resolving]
  - Monocytosis [Recovering/Resolving]
  - Pleural effusion [Recovering/Resolving]
  - Lymphadenopathy [Recovering/Resolving]
  - Normochromic normocytic anaemia [Recovering/Resolving]
  - Local swelling [Recovering/Resolving]
  - Red blood cell count decreased [Recovering/Resolving]
  - Metamyelocyte count decreased [Recovering/Resolving]
  - Night sweats [Recovering/Resolving]
  - Weight decreased [Recovering/Resolving]
  - Pancytopenia [Recovering/Resolving]
  - White blood cell count decreased [Recovering/Resolving]
  - Haematocrit decreased [Recovering/Resolving]
  - Blood calcium decreased [Recovering/Resolving]
  - Abdominal mass [Recovering/Resolving]
  - Lymphoproliferative disorder [Recovering/Resolving]
  - Pulmonary embolism [Recovering/Resolving]
  - Haemoglobin decreased [Recovering/Resolving]
  - Protein total decreased [Recovering/Resolving]
  - Blood alkaline phosphatase increased [Recovering/Resolving]

NARRATIVE: CASE EVENT DATE: 20140128
